FAERS Safety Report 7661678-2 (Version None)
Quarter: 2011Q3

REPORT INFORMATION
  Report Type: 
  Country: None (occurrence: None)
  Receive Date: 20110805
  Receipt Date: 20101119
  Transmission Date: 20111222
  Serious: No
  Sender: FDA-Public Use
  Company Number: US-ABBOTT-10P-163-0686645-00

PATIENT
  Sex: Female
  Weight: 65.83 kg

DRUGS (7)
  1. CRESTOR [Concomitant]
     Indication: PRODUCT USED FOR UNKNOWN INDICATION
  2. ZETIA [Concomitant]
     Indication: PRODUCT USED FOR UNKNOWN INDICATION
  3. NIASPAN [Suspect]
     Indication: BLOOD CHOLESTEROL
     Dates: start: 20101007
  4. JANUVIA [Suspect]
     Indication: DIABETES MELLITUS
  5. DEPAKOTE [Concomitant]
     Indication: CONVULSION
     Dosage: AT HS
  6. KEPRA [Concomitant]
     Indication: PRODUCT USED FOR UNKNOWN INDICATION
     Dosage: 3 IN AM AND HS
  7. VIT D [Concomitant]
     Indication: PRODUCT USED FOR UNKNOWN INDICATION

REACTIONS (2)
  - MYALGIA [None]
  - HEADACHE [None]
